FAERS Safety Report 6884873-9 (Version None)
Quarter: 2010Q3

REPORT INFORMATION
  Report Type: 
  Country: None (occurrence: None)
  Receive Date: 20100729
  Receipt Date: 20070825
  Transmission Date: 20110219
  Serious: No
  Sender: FDA-Public Use
  Company Number: US-PFIZER INC-2007071388

PATIENT
  Sex: Male
  Weight: 77.11 kg

DRUGS (4)
  1. CELEBREX [Suspect]
     Indication: PAIN IN EXTREMITY
     Dates: start: 20070824, end: 20070824
  2. CELEBREX [Suspect]
     Indication: TRIGGER FINGER
  3. AMOXICILLIN [Concomitant]
     Dates: start: 19910101
  4. AMPICILLIN SODIUM [Concomitant]
     Dates: start: 19910101

REACTIONS (5)
  - DYSPHONIA [None]
  - ERYTHEMA [None]
  - HYPERSENSITIVITY [None]
  - NASOPHARYNGITIS [None]
  - OEDEMA PERIPHERAL [None]
